FAERS Safety Report 22587174 (Version 1)
Quarter: 2023Q2

REPORT INFORMATION
  Report Type: Spontaneous
  Country: CA (occurrence: CA)
  Receive Date: 20230612
  Receipt Date: 20230612
  Transmission Date: 20230722
  Serious: Yes (Other)
  Sender: FDA-Public Use
  Company Number: CA-AMGEN-CANSP2023098762

PATIENT
  Sex: Female

DRUGS (2)
  1. PROLIA [Suspect]
     Active Substance: DENOSUMAB
     Indication: Hypercalcaemia
     Dosage: UNK (EVERY 7 TO 10 WEEKS)
     Route: 065
  2. PROLIA [Suspect]
     Active Substance: DENOSUMAB
     Indication: Osteopetrosis

REACTIONS (5)
  - Traumatic fracture [Unknown]
  - Rebound effect [Unknown]
  - Drug effective for unapproved indication [Unknown]
  - C-telopeptide increased [Unknown]
  - Off label use [Unknown]
